FAERS Safety Report 4470435-X (Version None)
Quarter: 2004Q3

REPORT INFORMATION
  Report Type: 
  Country: None (occurrence: None)
  Receive Date: 20040909
  Receipt Date: 20040716
  Transmission Date: 20050211
  Serious: Yes (Life-Threatening)
  Sender: FDA-Public Use
  Company Number: A03200402365

PATIENT
  Age: 64 Year
  Sex: Female

DRUGS (3)
  1. ELOXATION  - OXALIPLATION - SOLUTION  - 200 MG [Suspect]
     Indication: COLON CANCER
     Dosage: 200 MG OTHER - INTRAVENOUS NOS
     Route: 042
     Dates: start: 20040213, end: 20040213
  2. FLUOROURACIL [Concomitant]
  3. LEUCOVORIN CALCIUM [Concomitant]

REACTIONS (9)
  - COLD SWEAT [None]
  - DIZZINESS [None]
  - DYSPNOEA [None]
  - FEELING HOT [None]
  - FLUSHING [None]
  - HEART RATE INCREASED [None]
  - NERVOUSNESS [None]
  - OXYGEN SATURATION DECREASED [None]
  - URTICARIA [None]
